FAERS Safety Report 10397216 (Version 1)
Quarter: 2014Q3

REPORT INFORMATION
  Report Type: Spontaneous
  Country: US (occurrence: US)
  Receive Date: 20140820
  Receipt Date: 20140820
  Transmission Date: 20150326
  Serious: No
  Sender: FDA-Public Use
  Company Number: US-PFIZER INC-2014229333

PATIENT
  Age: 53 Year
  Sex: Female
  Weight: 86.17 kg

DRUGS (1)
  1. THIOTHIXENE HCL [Suspect]
     Active Substance: THIOTHIXENE HYDROCHLORIDE
     Indication: PSYCHOTHERAPY
     Dosage: 4 MG, 1X/DAY
     Dates: start: 2013

REACTIONS (1)
  - Drug effect incomplete [Unknown]
